FAERS Safety Report 20709991 (Version 1)
Quarter: 2022Q2

REPORT INFORMATION
  Report Type: Report from Study
  Country: US (occurrence: US)
  Receive Date: 20220414
  Receipt Date: 20220414
  Transmission Date: 20220720
  Serious: Yes (Hospitalization, Other)
  Sender: FDA-Public Use
  Company Number: US-NOVARTISPH-NVSC2022US082806

PATIENT
  Age: 56 Year
  Sex: Male

DRUGS (4)
  1. ENTRESTO [Suspect]
     Active Substance: SACUBITRIL\VALSARTAN
     Indication: Product used for unknown indication
     Dosage: 1 DOSAGE FORM, BID
     Route: 048
     Dates: start: 20210508
  2. METOPROLOL [Concomitant]
     Active Substance: METOPROLOL
     Indication: Product used for unknown indication
     Dosage: UNK
     Route: 065
  3. METHOTREXATE [Concomitant]
     Active Substance: METHOTREXATE
     Indication: Product used for unknown indication
     Dosage: UNK
     Route: 065
  4. ELIQUIS [Concomitant]
     Active Substance: APIXABAN
     Indication: Product used for unknown indication
     Dosage: UNK
     Route: 065

REACTIONS (17)
  - Pneumonia [Unknown]
  - Dyspnoea [Recovering/Resolving]
  - Cerebrovascular accident [Unknown]
  - Intracardiac thrombus [Unknown]
  - Wound infection staphylococcal [Unknown]
  - Pulmonary oedema [Unknown]
  - Illness [Unknown]
  - Headache [Unknown]
  - Pulmonary toxicity [Unknown]
  - Acute pulmonary oedema [Unknown]
  - Heart rate increased [Unknown]
  - Acne [Unknown]
  - COVID-19 [Unknown]
  - Contusion [Unknown]
  - Visual impairment [Unknown]
  - Feeling abnormal [Unknown]
  - Condition aggravated [Unknown]

NARRATIVE: CASE EVENT DATE: 20211007
